FAERS Safety Report 20964758 (Version 1)
Quarter: 2022Q2

REPORT INFORMATION
  Report Type: Spontaneous
  Country: US (occurrence: US)
  Receive Date: 20220615
  Receipt Date: 20220615
  Transmission Date: 20220721
  Serious: Yes (Other)
  Sender: FDA-Public Use
  Company Number: US-CELLTRION INC.-2022US009052

PATIENT

DRUGS (1)
  1. INFLECTRA [Suspect]
     Active Substance: INFLIXIMAB-DYYB
     Indication: Rheumatoid arthritis
     Dosage: 200MG INTRAVENOUSLY INFUSED - FREQUENCY UNKNOWN
     Route: 042
     Dates: start: 20220606

REACTIONS (2)
  - Infusion related hypersensitivity reaction [Unknown]
  - Overdose [Unknown]

NARRATIVE: CASE EVENT DATE: 20220607
